FAERS Safety Report 8080025-8 (Version None)
Quarter: 2012Q1

REPORT INFORMATION
  Report Type: 
  Country: None (occurrence: None)
  Receive Date: 20120128
  Receipt Date: 20110812
  Transmission Date: 20120608
  Serious: No
  Sender: FDA-Public Use
  Company Number: US-ABBOTT-11P-163-0845814-00

PATIENT
  Age: 43 Year
  Sex: Female

DRUGS (4)
  1. METFFORMIN HYDROCHLORIDE [Concomitant]
     Indication: DIABETES MELLITUS
  2. LISINOPRIL [Concomitant]
     Indication: PROPHYLAXIS
  3. LISINOPRIL [Concomitant]
     Indication: RENAL DISORDER
  4. HUMIRA [Suspect]
     Indication: PSORIASIS
     Dates: start: 20110805

REACTIONS (2)
  - CELLULITIS [None]
  - WRONG TECHNIQUE IN DRUG USAGE PROCESS [None]
